FAERS Safety Report 11520585 (Version 2)
Quarter: 2017Q4

REPORT INFORMATION
  Report Type: Spontaneous
  Country: JP (occurrence: JP)
  Receive Date: 20150918
  Receipt Date: 20171003
  Transmission Date: 20180320
  Serious: Yes (Other)
  Sender: FDA-Public Use
  Company Number: JP-SUN PHARMACEUTICAL INDUSTRIES LTD-2015RR-103343

PATIENT
  Sex: Female

DRUGS (4)
  1. ETOPOSIDE. [Suspect]
     Active Substance: ETOPOSIDE
     Indication: METASTASES TO LYMPH NODES
     Dosage: EIGHT CYCLES OF 50 MG/BODY ON DAYS 1 TO 21 AND EVERY 28 DAYS THEREAFTER
     Route: 048
     Dates: start: 201307
  2. IRINOTECAN [Suspect]
     Active Substance: IRINOTECAN
     Indication: METASTASES TO LYMPH NODES
     Dosage: EIGHT CYCLES ON DAYS 1 AND 15
     Route: 065
     Dates: start: 201307
  3. GEMCITABINE [Suspect]
     Active Substance: GEMCITABINE\GEMCITABINE HYDROCHLORIDE
     Indication: METASTASES TO LYMPH NODES
     Dosage: 20 CYCLES ON DAY 1 AND EVERY 14 DAYS THEREAFTER
     Route: 065
     Dates: start: 201109
  4. DOXORUBICIN [Suspect]
     Active Substance: DOXORUBICIN
     Indication: METASTASES TO LYMPH NODES
     Dosage: TWO CYCLES OF PEGYLATED LIPOSOMAL DOXORUBICIN MONOTHERAPY
     Route: 065
     Dates: start: 201105

REACTIONS (3)
  - Therapy non-responder [Not Recovered/Not Resolved]
  - Condition aggravated [Not Recovered/Not Resolved]
  - Drug ineffective [Not Recovered/Not Resolved]
